FAERS Safety Report 9169264 (Version 1)
Quarter: 2013Q1

REPORT INFORMATION
  Report Type: Spontaneous
  Country: NZ (occurrence: NZ)
  Receive Date: 20130318
  Receipt Date: 20130318
  Transmission Date: 20140127
  Serious: Yes (Other)
  Sender: FDA-Public Use
  Company Number: NZ-ROCHE-1185427

PATIENT
  Age: 63 None
  Sex: Female

DRUGS (11)
  1. HERCEPTIN [Suspect]
     Indication: BREAST CANCER
     Route: 042
     Dates: start: 20100601, end: 20100805
  2. HERCEPTIN [Suspect]
     Indication: BREAST CANCER
     Route: 042
     Dates: start: 20101111
  3. CARVEDILOL [Concomitant]
     Route: 065
  4. PLAQUENIL [Concomitant]
     Route: 065
  5. DOCETAXEL [Concomitant]
     Indication: BREAST CANCER
  6. CILAZAPRIL [Concomitant]
     Route: 065
  7. SPIRONOLACTONE [Concomitant]
     Route: 065
  8. PREDNISONE [Concomitant]
     Route: 065
  9. OMEPRAZOLE [Concomitant]
     Route: 065
  10. ASPIRINE [Concomitant]
     Route: 065
  11. PARACETAMOL [Concomitant]
     Dosage: PRN (AS REQUIRED)
     Route: 065

REACTIONS (3)
  - Electrocardiogram abnormal [Unknown]
  - Cardiac disorder [Unknown]
  - Ejection fraction decreased [Recovering/Resolving]
